FAERS Safety Report 19134858 (Version 3)
Quarter: 2021Q4

REPORT INFORMATION
  Report Type: Report from Study
  Country: CO (occurrence: CO)
  Receive Date: 20210414
  Receipt Date: 20211204
  Transmission Date: 20220304
  Serious: Yes (Hospitalization)
  Sender: FDA-Public Use
  Company Number: NVSC2021CO060916

PATIENT
  Age: 39 Year
  Sex: Female
  Weight: 61 kg

DRUGS (2)
  1. COSENTYX [Suspect]
     Active Substance: SECUKINUMAB
     Indication: Psoriatic arthropathy
     Dosage: 300 MG, QMO
     Route: 058
     Dates: start: 20190417, end: 202102
  2. VITAMIN D [Concomitant]
     Active Substance: VITAMIN D NOS
     Indication: Bone pain
     Dosage: UNK UNK, QW
     Route: 048
     Dates: start: 202103

REACTIONS (4)
  - Anxiety [Unknown]
  - Depression [Unknown]
  - Maternal exposure during pregnancy [Unknown]
  - Arthralgia [Unknown]

NARRATIVE: CASE EVENT DATE: 20201101
